FAERS Safety Report 21950731 (Version 2)
Quarter: 2023Q1

REPORT INFORMATION
  Report Type: Spontaneous
  Country: US (occurrence: None)
  Receive Date: 20230203
  Receipt Date: 20230206
  Transmission Date: 20230417
  Serious: Yes (Life-Threatening, Other)
  Sender: FDA-Public Use
  Company Number: 2023A028780

PATIENT
  Age: 36 Year
  Sex: Female
  Weight: 71.2 kg

DRUGS (2)
  1. TEZSPIRE [Suspect]
     Active Substance: TEZEPELUMAB-EKKO
  2. DUPIXENT [Concomitant]
     Active Substance: DUPILUMAB

REACTIONS (7)
  - Shock [Unknown]
  - Anaphylactic reaction [Unknown]
  - Nausea [Unknown]
  - Dizziness [Unknown]
  - Drug hypersensitivity [Unknown]
  - Hypoaesthesia oral [Unknown]
  - Rash [Unknown]
